FAERS Safety Report 19438183 (Version 2)
Quarter: 2022Q1

REPORT INFORMATION
  Report Type: Spontaneous
  Country: US (occurrence: None)
  Receive Date: 20210618
  Receipt Date: 20220301
  Transmission Date: 20220423
  Serious: Yes (Other)
  Sender: FDA-Public Use
  Company Number: 2021A524997

PATIENT
  Age: 19645 Day
  Sex: Female

DRUGS (39)
  1. PRILOSEC [Suspect]
     Active Substance: OMEPRAZOLE MAGNESIUM
     Indication: Gastrooesophageal reflux disease
     Route: 048
     Dates: start: 2007, end: 2018
  2. PRILOSEC [Suspect]
     Active Substance: OMEPRAZOLE MAGNESIUM
     Indication: Gastrooesophageal reflux disease
     Dosage: GENERIC
     Route: 065
     Dates: start: 2015, end: 2018
  3. PRILOSEC OTC [Suspect]
     Active Substance: OMEPRAZOLE MAGNESIUM
     Indication: Gastrooesophageal reflux disease
     Route: 048
     Dates: start: 2007, end: 2018
  4. PANTOPRAZOLE [Suspect]
     Active Substance: PANTOPRAZOLE
     Indication: Gastrooesophageal reflux disease
     Dosage: GENERIC
     Route: 065
     Dates: start: 2015, end: 2021
  5. ALENDRONATE [Concomitant]
     Active Substance: ALENDRONATE SODIUM
  6. LANTUS [Concomitant]
     Active Substance: INSULIN GLARGINE
  7. SIMVASTATIN [Concomitant]
     Active Substance: SIMVASTATIN
  8. RANITIDINE [Concomitant]
     Active Substance: RANITIDINE
  9. LISINOPRIL [Concomitant]
     Active Substance: LISINOPRIL
  10. DRISDOL [Concomitant]
     Active Substance: ERGOCALCIFEROL
  11. NOVOLOG [Concomitant]
     Active Substance: INSULIN ASPART
  12. ACETAMINOPHEN\HYDROCODONE BITARTRATE [Concomitant]
     Active Substance: ACETAMINOPHEN\HYDROCODONE BITARTRATE
  13. COMBIVENT [Concomitant]
     Active Substance: ALBUTEROL SULFATE\IPRATROPIUM BROMIDE
  14. CLOPIDOGREL [Concomitant]
     Active Substance: CLOPIDOGREL BISULFATE
  15. ATORVASTATIN [Concomitant]
     Active Substance: ATORVASTATIN
  16. METOPROLOL SUCCINATE [Concomitant]
     Active Substance: METOPROLOL SUCCINATE
  17. ADVAIR HFA [Concomitant]
     Active Substance: FLUTICASONE PROPIONATE\SALMETEROL XINAFOATE
  18. FLUCONAZOLE [Concomitant]
     Active Substance: FLUCONAZOLE
  19. METOCLOPRAMIDE [Concomitant]
     Active Substance: METOCLOPRAMIDE
  20. LATUDA [Concomitant]
     Active Substance: LURASIDONE HYDROCHLORIDE
  21. BENZONATATE [Concomitant]
     Active Substance: BENZONATATE
  22. MUCINEX [Concomitant]
     Active Substance: GUAIFENESIN
  23. HYDROXYZINE PAMOATE [Concomitant]
     Active Substance: HYDROXYZINE PAMOATE
  24. NASONEX [Concomitant]
     Active Substance: MOMETASONE FUROATE
  25. HUMALOG [Concomitant]
     Active Substance: INSULIN LISPRO
  26. AMITRIPTYLINE [Concomitant]
     Active Substance: AMITRIPTYLINE
  27. VALACYCLOVIR [Concomitant]
     Active Substance: VALACYCLOVIR HYDROCHLORIDE
  28. ACETAMINOPHEN AND CODEINE [Concomitant]
     Active Substance: ACETAMINOPHEN\CODEINE PHOSPHATE
  29. LIDODERM [Concomitant]
     Active Substance: LIDOCAINE
  30. MELOXICAM [Concomitant]
     Active Substance: MELOXICAM
  31. DICLOFENAC [Concomitant]
     Active Substance: DICLOFENAC
  32. METHOCARBAMOL [Concomitant]
     Active Substance: METHOCARBAMOL
  33. VITAMIN B12 [Concomitant]
     Active Substance: CYANOCOBALAMIN
  34. LYRICA [Concomitant]
     Active Substance: PREGABALIN
  35. VOLTAREN [Concomitant]
     Active Substance: DICLOFENAC SODIUM
  36. FERROUS SULFATE [Concomitant]
     Active Substance: FERROUS SULFATE
  37. CHANTIX [Concomitant]
     Active Substance: VARENICLINE TARTRATE
  38. CEPHALEXIN [Concomitant]
     Active Substance: CEPHALEXIN
  39. TAMIFLU [Concomitant]
     Active Substance: OSELTAMIVIR PHOSPHATE

REACTIONS (3)
  - Acute kidney injury [Unknown]
  - Chronic kidney disease [Unknown]
  - Renal failure [Unknown]

NARRATIVE: CASE EVENT DATE: 20180503
